FAERS Safety Report 11361841 (Version 4)
Quarter: 2016Q1

REPORT INFORMATION
  Report Type: Report from Study
  Country: GT (occurrence: GT)
  Receive Date: 20150810
  Receipt Date: 20160323
  Transmission Date: 20160525
  Serious: Yes (Hospitalization)
  Sender: FDA-Public Use
  Company Number: PHHY2015GT095940

PATIENT
  Sex: Female
  Weight: 118 kg

DRUGS (1)
  1. GILENYA [Suspect]
     Active Substance: FINGOLIMOD HYDROCHLORIDE
     Indication: MULTIPLE SCLEROSIS
     Dosage: UNK, QD
     Route: 065

REACTIONS (2)
  - Hepatic mass [Recovering/Resolving]
  - Cyst [Unknown]
